FAERS Safety Report 8976745 (Version 3)
Quarter: 2013Q1

REPORT INFORMATION
  Report Type: Report from Study
  Country: FR (occurrence: FR)
  Receive Date: 20121220
  Receipt Date: 20130115
  Transmission Date: 20140127
  Serious: Yes (Hospitalization)
  Sender: FDA-Public Use
  Company Number: FR-BRISTOL-MYERS SQUIBB COMPANY-17020454

PATIENT
  Age: 57 Year
  Sex: Female

DRUGS (12)
  1. IPILIMUMAB [Suspect]
     Indication: MALIGNANT MELANOMA
     Dosage: 14JUN2012-17AUG2012
     Route: 042
     Dates: start: 20120614, end: 20120813
  2. VEMURAFENIB [Suspect]
     Dosage: 1 DF:240 X 4 MG/DAY?INTER:07DEC2012?RESTART:26DEC2012(DOSE:240 X 3 MG/DAY)
     Dates: start: 20121012
  3. PARACETAMOL [Concomitant]
     Route: 048
     Dates: start: 20120704
  4. SERTRALINE [Concomitant]
     Route: 048
     Dates: start: 201109
  5. PRAZEPAM [Concomitant]
     Route: 048
     Dates: start: 201109
  6. LORMETAZEPAM [Concomitant]
     Route: 048
     Dates: start: 201109
  7. CANDESARTAN CILEXETIL [Concomitant]
     Route: 048
     Dates: start: 2000
  8. ATORVASTATIN [Concomitant]
     Route: 048
     Dates: start: 2000
  9. AMOXICILLINE [Concomitant]
     Dates: start: 20120914, end: 20120921
  10. HYDROCHLOROTHIAZIDE [Concomitant]
     Route: 048
     Dates: start: 2000
  11. LOPERAMIDE [Concomitant]
     Dates: start: 20120930, end: 20121005
  12. PHLOROGLUCINOL [Concomitant]
     Dates: start: 20120930, end: 20121005

REACTIONS (4)
  - Colitis [Recovered/Resolved]
  - Toxic skin eruption [Recovered/Resolved]
  - Hepatocellular injury [Unknown]
  - Diarrhoea [Recovered/Resolved]
